FAERS Safety Report 17207975 (Version 1)
Quarter: 2019Q4

REPORT INFORMATION
  Report Type: Report from Study
  Country: IT (occurrence: IT)
  Receive Date: 20191227
  Receipt Date: 20191227
  Transmission Date: 20200122
  Serious: Yes (Other)
  Sender: FDA-Public Use
  Company Number: IT-PFIZER INC-2019553966

PATIENT
  Age: 62 Year
  Sex: Female

DRUGS (3)
  1. DEPALGOS [Suspect]
     Active Substance: ACETAMINOPHEN\OXYCODONE HYDROCHLORIDE
     Dosage: 220 MG, UNK
     Route: 048
     Dates: start: 20190809, end: 20190809
  2. GABAPENTIN. [Suspect]
     Active Substance: GABAPENTIN
     Dosage: 3300 MG, 1X/DAY
     Route: 048
     Dates: start: 20190809, end: 20190809
  3. RIVOTRIL [Concomitant]
     Active Substance: CLONAZEPAM
     Dosage: 10 GTT, UNK
     Dates: start: 20190809, end: 20190809

REACTIONS (5)
  - Speech disorder [Recovering/Resolving]
  - Sedation [Recovering/Resolving]
  - Drug abuse [Recovering/Resolving]
  - Confusional state [Recovering/Resolving]
  - Intentional self-injury [Recovering/Resolving]

NARRATIVE: CASE EVENT DATE: 20190810
